FAERS Safety Report 6177668-5 (Version None)
Quarter: 2009Q2

REPORT INFORMATION
  Report Type: 
  Country: None (occurrence: None)
  Receive Date: 20090504
  Receipt Date: 20090424
  Transmission Date: 20091009
  Serious: Yes (Hospitalization)
  Sender: FDA-Public Use
  Company Number: PHHO2008NL09592

PATIENT
  Sex: Female
  Weight: 52 kg

DRUGS (2)
  1. EVEROLIMUS [Suspect]
     Dosage: UNK
     Route: 048
     Dates: start: 20000723, end: 20090120
  2. AEB071 AEB+GELCAP [Suspect]
     Indication: RENAL TRANSPLANT
     Dosage: 300 MG, BID
     Route: 048
     Dates: start: 20080723

REACTIONS (12)
  - BLOOD CREATININE INCREASED [None]
  - C-REACTIVE PROTEIN INCREASED [None]
  - IMPAIRED HEALING [None]
  - NEPHROSTOMY [None]
  - POST PROCEDURAL URINE LEAK [None]
  - PSEUDOMONAS INFECTION [None]
  - PYREXIA [None]
  - URETERIC OBSTRUCTION [None]
  - URETERIC STENOSIS [None]
  - URINARY TRACT INFECTION [None]
  - UROSEPSIS [None]
  - VESICOURETERAL REFLUX SURGERY [None]
